FAERS Safety Report 26133631 (Version 1)
Quarter: 2025Q4

REPORT INFORMATION
  Report Type: Spontaneous
  Country: JP (occurrence: JP)
  Receive Date: 20251209
  Receipt Date: 20251209
  Transmission Date: 20260117
  Serious: Yes (Other)
  Sender: ALKEM
  Company Number: JP-ALKEM LABORATORIES LIMITED-JP-ALKEM-2025-10310

PATIENT
  Age: 48 Year
  Sex: Male

DRUGS (6)
  1. VANCOMYCIN [Suspect]
     Active Substance: VANCOMYCIN
     Indication: Thrombophlebitis septic
     Dosage: UNK
     Route: 065
  2. VANCOMYCIN [Suspect]
     Active Substance: VANCOMYCIN
     Indication: Bacillus infection
  3. VANCOMYCIN [Suspect]
     Active Substance: VANCOMYCIN
     Indication: Bacteraemia
  4. METHYLPREDNISOLONE [Suspect]
     Active Substance: METHYLPREDNISOLONE
     Indication: Miller Fisher syndrome
     Dosage: 1 GRAM
     Route: 065
  5. HUMAN IMMUNOGLOBULIN G [Suspect]
     Active Substance: HUMAN IMMUNOGLOBULIN G
     Indication: Miller Fisher syndrome
     Dosage: UNK
     Route: 042
  6. AMINO ACIDS [Concomitant]
     Active Substance: AMINO ACIDS
     Indication: Dysphagia
     Dosage: 1500 MILLILITER, QD
     Route: 065

REACTIONS (6)
  - Thrombophlebitis septic [Unknown]
  - Bacteraemia [Unknown]
  - Pneumonia aspiration [Unknown]
  - Bacillus infection [Recovered/Resolved]
  - Drug eruption [Unknown]
  - Therapy non-responder [Unknown]
